FAERS Safety Report 24539899 (Version 1)
Quarter: 2024Q4

REPORT INFORMATION
  Report Type: Spontaneous
  Country: AE (occurrence: AE)
  Receive Date: 20241023
  Receipt Date: 20241023
  Transmission Date: 20250114
  Serious: Yes (Hospitalization)
  Sender: PFIZER
  Company Number: AE-PFIZER INC-202400279113

PATIENT
  Sex: Male

DRUGS (1)
  1. RITLECITINIB [Suspect]
     Active Substance: RITLECITINIB
     Indication: Vitiligo
     Dosage: FIRST 3 DOSES

REACTIONS (2)
  - Abdominal pain [Recovering/Resolving]
  - Off label use [Unknown]
